FAERS Safety Report 6827915-9 (Version None)
Quarter: 2010Q3

REPORT INFORMATION
  Report Type: 
  Country: None (occurrence: None)
  Receive Date: 20100709
  Receipt Date: 20100701
  Transmission Date: 20110219
  Serious: Yes (Hospitalization)
  Sender: FDA-Public Use
  Company Number: A0868706A

PATIENT
  Age: 51 Year
  Sex: Female

DRUGS (3)
  1. AVANDIA [Suspect]
     Dosage: 4MG PER DAY
     Route: 048
     Dates: start: 20040520, end: 20090620
  2. AVANDAMET [Suspect]
     Route: 048
     Dates: start: 20041207, end: 20050107
  3. AMARYL [Concomitant]
     Dosage: 4MG TWICE PER DAY
     Route: 048
     Dates: start: 20070701

REACTIONS (1)
  - MYOCARDIAL INFARCTION [None]
